FAERS Safety Report 20357333 (Version 1)
Quarter: 2022Q1

REPORT INFORMATION
  Report Type: Spontaneous
  Country: US (occurrence: US)
  Receive Date: 20220120
  Receipt Date: 20220120
  Transmission Date: 20220423
  Serious: No
  Sender: FDA-Public Use
  Company Number: ENDG21-03548

PATIENT
  Age: 69 Year
  Sex: Male
  Weight: 125.6 kg

DRUGS (1)
  1. HYDROCODONE BITARTRATE AND ACETAMINOPHEN [Suspect]
     Active Substance: ACETAMINOPHEN\HYDROCODONE BITARTRATE
     Indication: Pain
     Dosage: ONE TO TWO TABLETS BY MOUTH EVERY SIX HOURS AS NEEDED, MAXIMUM OF SIX TABLETS PER DAY
     Route: 048
     Dates: start: 202103

REACTIONS (2)
  - Drug ineffective [Unknown]
  - Somnolence [Unknown]

NARRATIVE: CASE EVENT DATE: 20210301
